FAERS Safety Report 12205948 (Version 1)
Quarter: 2016Q1

REPORT INFORMATION
  Report Type: Spontaneous
  Country: AU (occurrence: AU)
  Receive Date: 20160323
  Receipt Date: 20160323
  Transmission Date: 20160526
  Serious: Yes (Death, Hospitalization)
  Sender: FDA-Public Use
  Company Number: AU-ELI_LILLY_AND_COMPANY-AU201603006915

PATIENT
  Age: 84 Year
  Sex: Female

DRUGS (8)
  1. DIGOXIN. [Concomitant]
     Active Substance: DIGOXIN
     Indication: ATRIAL FIBRILLATION
     Dosage: UNK, UNKNOWN
     Route: 065
  2. AVANZA [Interacting]
     Active Substance: MIRTAZAPINE
     Indication: DEPRESSION
     Dosage: UNK, UNKNOWN
     Route: 065
  3. VALIUM [Interacting]
     Active Substance: DIAZEPAM
     Indication: SEDATIVE THERAPY
     Dosage: UNK, UNKNOWN
     Route: 065
  4. AROPAX [Interacting]
     Active Substance: PAROXETINE HYDROCHLORIDE
     Indication: DEPRESSION
     Dosage: UNK, UNKNOWN
     Route: 065
  5. OXAZEPAM. [Interacting]
     Active Substance: OXAZEPAM
     Indication: PRODUCT USED FOR UNKNOWN INDICATION
     Dosage: UNK, UNKNOWN
     Route: 065
  6. WARFARIN [Interacting]
     Active Substance: WARFARIN
     Indication: ANTICOAGULANT THERAPY
     Dosage: UNK, UNKNOWN
     Route: 065
  7. ZYPREXA [Suspect]
     Active Substance: OLANZAPINE
     Indication: PSYCHOTIC DISORDER
     Dosage: UNK, UNKNOWN
     Route: 065
  8. TEGRETOL [Interacting]
     Active Substance: CARBAMAZEPINE
     Indication: EPILEPSY
     Dosage: UNK, UNKNOWN
     Route: 065

REACTIONS (7)
  - Drug interaction [Unknown]
  - Sedation [Not Recovered/Not Resolved]
  - Haematoma [Not Recovered/Not Resolved]
  - Fall [Not Recovered/Not Resolved]
  - Subdural haematoma [Fatal]
  - Hallucination [Not Recovered/Not Resolved]
  - Upper limb fracture [Unknown]

NARRATIVE: CASE EVENT DATE: 20140815
